FAERS Safety Report 6751423-7 (Version None)
Quarter: 2010Q2

REPORT INFORMATION
  Report Type: 
  Country: None (occurrence: None)
  Receive Date: 20100602
  Receipt Date: 20090202
  Transmission Date: 20101027
  Serious: Yes (Other)
  Sender: FDA-Public Use
  Company Number: US-ROCHE-612545

PATIENT
  Age: 58 Year
  Sex: Male

DRUGS (4)
  1. GANCICLOVIR SODIUM [Suspect]
     Indication: PROPHYLAXIS
     Route: 042
  2. MYCOPHENOLATE MOFETIL [Suspect]
     Route: 065
  3. TACROLIMUS [Suspect]
     Route: 065
  4. ACYCLOVIR [Suspect]
     Indication: DRUG USE FOR UNKNOWN INDICATION
     Route: 065

REACTIONS (5)
  - ASPERGILLOSIS [None]
  - BILIARY TRACT DISORDER [None]
  - HERPES OESOPHAGITIS [None]
  - PNEUMONIA [None]
  - RENAL FAILURE [None]
